FAERS Safety Report 5332346-7 (Version None)
Quarter: 2007Q2

REPORT INFORMATION
  Report Type: 
  Country: None (occurrence: None)
  Receive Date: 20070523
  Receipt Date: 20070521
  Transmission Date: 20071010
  Serious: Yes (Hospitalization)
  Sender: FDA-Public Use
  Company Number: A0652140A

PATIENT
  Age: 70 Year
  Sex: Female

DRUGS (15)
  1. TYKERB [Suspect]
     Indication: BREAST CANCER
     Dosage: 1250MG PER DAY
     Route: 048
     Dates: start: 20070401
  2. XELODA [Suspect]
     Indication: BREAST CANCER
     Dosage: 9TAB TWICE PER DAY
     Route: 048
     Dates: start: 20070401, end: 20070415
  3. ZOLOFT [Concomitant]
  4. MULTI-VITAMIN [Concomitant]
  5. CALCIUM CHLORIDE [Concomitant]
  6. ASCORBIC ACID [Concomitant]
  7. HYDROCHLOROTHIAZIDE [Concomitant]
  8. ENALAPRIL [Concomitant]
  9. SYNTHROID [Concomitant]
  10. OMEPRAZOLE [Concomitant]
  11. AMITRIPTYLINE HCL [Concomitant]
  12. LORAZEPAM [Concomitant]
  13. MACROBID [Concomitant]
  14. FOSAMAX [Concomitant]
  15. DEXEDRINE [Concomitant]

REACTIONS (5)
  - DEHYDRATION [None]
  - DIARRHOEA [None]
  - MOUTH ULCERATION [None]
  - RASH [None]
  - SOMNOLENCE [None]
